FAERS Safety Report 7332483-1 (Version None)
Quarter: 2011Q1

REPORT INFORMATION
  Report Type: 
  Country: None (occurrence: None)
  Receive Date: 20110222
  Receipt Date: 20110209
  Transmission Date: 20110831
  Serious: Yes (Hospitalization)
  Sender: FDA-Public Use
  Company Number: 1000018832

PATIENT
  Age: 56 Year
  Sex: Male

DRUGS (4)
  1. EZETROL (EZETIMIBE) (EZETIMIBE) [Concomitant]
  2. PLAVIX [Suspect]
     Dates: start: 20050101, end: 20101229
  3. NEBIVOLOL (NEBIVOLOL HYDROCHLORIDE) [Suspect]
     Dosage: ORAL
     Route: 048
     Dates: start: 20050101, end: 20101229
  4. OMACOR (OMEGA-3 POLYUNSATURATED FATTY ACIDS) (OMEGA-3 POLYUNSATURATED [Concomitant]

REACTIONS (5)
  - SKIN LESION [None]
  - NEPHROTIC SYNDROME [None]
  - SYSTEMIC LUPUS ERYTHEMATOSUS [None]
  - GLOMERULONEPHRITIS MEMBRANOUS [None]
  - ARTHRALGIA [None]
